FAERS Safety Report 9090815 (Version 3)
Quarter: 2013Q1

REPORT INFORMATION
  Report Type: Spontaneous
  Country: JP (occurrence: JP)
  Receive Date: 20130131
  Receipt Date: 20130314
  Transmission Date: 20140127
  Serious: Yes (Hospitalization)
  Sender: FDA-Public Use
  Company Number: JP-ROCHE-1184386

PATIENT
  Age: 57 Year
  Sex: Male
  Weight: 61 kg

DRUGS (9)
  1. MIRCERA [Suspect]
     Indication: NEPHROGENIC ANAEMIA
     Dosage: DOSAGE IS UNCERTAIN.
     Route: 058
     Dates: start: 201211, end: 201301
  2. YODEL-S [Suspect]
     Indication: PROPHYLAXIS
     Route: 048
     Dates: start: 20130107, end: 20130123
  3. FEBURIC [Suspect]
     Indication: PROPHYLAXIS
     Route: 048
     Dates: start: 201208, end: 20130123
  4. ZYLORIC [Suspect]
     Indication: PROPHYLAXIS
     Route: 048
     Dates: start: 201203, end: 20130123
  5. LASIX [Concomitant]
     Indication: PROPHYLAXIS
     Route: 048
     Dates: start: 201203, end: 20130129
  6. DIOVAL [Concomitant]
     Indication: PROPHYLAXIS
     Route: 048
     Dates: start: 201203, end: 20130129
  7. AMLODIN [Concomitant]
     Indication: PROPHYLAXIS
     Route: 048
     Dates: start: 201203, end: 20130202
  8. SODIUM BICARBONATE [Concomitant]
     Indication: PROPHYLAXIS
     Route: 048
     Dates: start: 201203, end: 20130123
  9. ALFAROL [Concomitant]
     Indication: PROPHYLAXIS
     Route: 048
     Dates: start: 201203, end: 20130123

REACTIONS (3)
  - Hepatitis acute [Not Recovered/Not Resolved]
  - Azotaemia [Recovering/Resolving]
  - Constipation [Recovered/Resolved]
